FAERS Safety Report 25944515 (Version 1)
Quarter: 2025Q4

REPORT INFORMATION
  Report Type: Spontaneous
  Country: EU (occurrence: EU)
  Receive Date: 20251021
  Receipt Date: 20251021
  Transmission Date: 20260117
  Serious: Yes (Other)
  Sender: NOVARTIS
  Company Number: EU-002147023-PHHY2019SE207748

PATIENT
  Age: 5 Year
  Sex: Male

DRUGS (15)
  1. METHYLPHENIDATE [Suspect]
     Active Substance: METHYLPHENIDATE
     Indication: Product used for unknown indication
     Dosage: 18 MG, QMO
     Route: 065
  2. METHYLPHENIDATE [Suspect]
     Active Substance: METHYLPHENIDATE
     Dosage: 27 MG, QMO
     Route: 065
  3. CARBAMAZEPINE [Suspect]
     Active Substance: CARBAMAZEPINE
     Indication: Product used for unknown indication
     Dosage: UNK
     Route: 065
  4. ZIPRASIDONE [Suspect]
     Active Substance: ZIPRASIDONE
     Indication: Product used for unknown indication
     Dosage: UNK
     Route: 065
  5. QUETIAPINE [Suspect]
     Active Substance: QUETIAPINE
     Indication: Product used for unknown indication
     Dosage: UNK
     Route: 065
  6. ATOMOXETINE [Suspect]
     Active Substance: ATOMOXETINE
     Indication: Product used for unknown indication
     Dosage: UNK
     Route: 065
  7. ARIPIPRAZOLE [Suspect]
     Active Substance: ARIPIPRAZOLE
     Indication: Product used for unknown indication
     Dosage: UNK
     Route: 065
  8. ILOPERIDONE [Suspect]
     Active Substance: ILOPERIDONE
     Indication: Product used for unknown indication
     Dosage: UNK
     Route: 065
  9. DEXTROAMPHETAMINE [Suspect]
     Active Substance: DEXTROAMPHETAMINE
     Indication: Product used for unknown indication
     Dosage: UNK
     Route: 065
  10. LISDEXAMFETAMINE [Suspect]
     Active Substance: LISDEXAMFETAMINE
     Indication: Product used for unknown indication
     Dosage: UNK
     Route: 065
  11. AMPHETAMINE [Suspect]
     Active Substance: AMPHETAMINE
     Indication: Product used for unknown indication
     Dosage: UNK
     Route: 065
  12. VALPROIC ACID [Suspect]
     Active Substance: VALPROIC ACID
     Indication: Product used for unknown indication
     Dosage: UNK
     Route: 065
  13. CHLORPROMAZINE [Suspect]
     Active Substance: CHLORPROMAZINE
     Indication: Product used for unknown indication
     Dosage: UNK
     Route: 065
  14. CLONIDINE [Suspect]
     Active Substance: CLONIDINE
     Indication: Product used for unknown indication
     Dosage: UNK
     Route: 065
  15. LITHIUM [Suspect]
     Active Substance: LITHIUM
     Indication: Product used for unknown indication
     Dosage: UNK
     Route: 065

REACTIONS (29)
  - Homicidal ideation [Unknown]
  - Sydenham^s chorea [Unknown]
  - Crying [Unknown]
  - Oppositional defiant disorder [Unknown]
  - Psychomotor hyperactivity [Unknown]
  - Coordination abnormal [Unknown]
  - Streptococcal infection [Unknown]
  - Aggression [Unknown]
  - Choreoathetosis [Unknown]
  - Decreased eye contact [Unknown]
  - Depressed mood [Unknown]
  - Speech disorder [Unknown]
  - Poor quality sleep [Unknown]
  - Bruxism [Unknown]
  - Suicidal ideation [Unknown]
  - Dyskinesia [Unknown]
  - Anxiety [Unknown]
  - Sleep disorder [Unknown]
  - Insomnia [Unknown]
  - Mood altered [Unknown]
  - Irritability [Unknown]
  - Fatigue [Unknown]
  - Hyperkinesia [Unknown]
  - Nervousness [Unknown]
  - Affect lability [Unknown]
  - Drug ineffective [Unknown]
  - Trismus [Not Recovered/Not Resolved]
  - Eye disorder [Unknown]
  - Vision blurred [Unknown]
